FAERS Safety Report 25324914 (Version 1)
Quarter: 2025Q2

REPORT INFORMATION
  Report Type: Spontaneous
  Country: US (occurrence: None)
  Receive Date: 20250516
  Receipt Date: 20250516
  Transmission Date: 20250716
  Serious: Yes (Death)
  Sender: FDA-CTU
  Company Number: None

PATIENT
  Age: 1 Year
  Sex: Female

DRUGS (12)
  1. TADLIQ [Suspect]
     Active Substance: TADALAFIL
     Indication: Pulmonary hypertension
     Dosage: FREQUENCY : DAILY;?
     Route: 048
     Dates: start: 20250212, end: 20250515
  2. SUMETANIDE [Concomitant]
  3. BUMETANIDE 2MG TABLETS [Concomitant]
  4. CORLANOR [Concomitant]
     Active Substance: IVABRADINE HYDROCHLORIDE
  5. CYPROPHEPTADINE [Concomitant]
  6. DIURIL [Concomitant]
     Active Substance: CHLOROTHIAZIDE
  7. FAMOTIDINE ORAL SUSP 50MI [Concomitant]
  8. FLOVENT HFA [Concomitant]
     Active Substance: FLUTICASONE PROPIONATE
  9. FUROSEMIDE [Concomitant]
     Active Substance: FUROSEMIDE
  10. LANSOPRAZOLE 15MG DR CAPSULES [Concomitant]
  11. MELATONIN ORAL LIQUID [Concomitant]
  12. SPIRONOLACTONE [Concomitant]
     Active Substance: SPIRONOLACTONE

REACTIONS (1)
  - Cardiac arrest [None]

NARRATIVE: CASE EVENT DATE: 20250515
